FAERS Safety Report 13051728 (Version 2)
Quarter: 2016Q4

REPORT INFORMATION
  Report Type: Spontaneous
  Country: US (occurrence: US)
  Receive Date: 20161221
  Receipt Date: 20161227
  Transmission Date: 20170207
  Serious: No
  Sender: FDA-Public Use
  Company Number: US-PFIZER INC-2016586678

PATIENT

DRUGS (3)
  1. REMERON [Suspect]
     Active Substance: MIRTAZAPINE
  2. VENLAFAXINE HCL [Suspect]
     Active Substance: VENLAFAXINE HYDROCHLORIDE
     Dosage: 75 MG, UNK
  3. VENLAFAXINE HCL [Suspect]
     Active Substance: VENLAFAXINE HYDROCHLORIDE
     Dosage: 150 MG, UNK

REACTIONS (5)
  - Tremor [Unknown]
  - Nausea [Unknown]
  - Drug dose titration not performed [Unknown]
  - Electric shock [Unknown]
  - Anxiety [Unknown]
